FAERS Safety Report 7178103-0 (Version None)
Quarter: 2010Q4

REPORT INFORMATION
  Report Type: 
  Country: None (occurrence: None)
  Receive Date: 20101220
  Receipt Date: 20101211
  Transmission Date: 20110411
  Serious: Yes (Other)
  Sender: FDA-Public Use
  Company Number: A0900202A

PATIENT
  Age: 68 Year
  Sex: Male

DRUGS (2)
  1. VENTOLIN [Suspect]
     Indication: ASTHMA
     Dosage: 2PUFF UNKNOWN
     Route: 055
  2. QVAR 40 [Concomitant]

REACTIONS (14)
  - ANXIETY [None]
  - BLOOD PRESSURE INCREASED [None]
  - DIABETES MELLITUS [None]
  - DIABETES MELLITUS INADEQUATE CONTROL [None]
  - DRUG ADMINISTRATION ERROR [None]
  - DRUG EFFECT DECREASED [None]
  - GLYCOSYLATED HAEMOGLOBIN INCREASED [None]
  - HEADACHE [None]
  - INSOMNIA [None]
  - MALAISE [None]
  - PALPITATIONS [None]
  - RESTLESSNESS [None]
  - STRESS [None]
  - TENSION [None]
